FAERS Safety Report 22104702 (Version 2)
Quarter: 2023Q1

REPORT INFORMATION
  Report Type: Spontaneous
  Country: IT (occurrence: IT)
  Receive Date: 20230316
  Receipt Date: 20230330
  Transmission Date: 20230417
  Serious: Yes (Death, Other)
  Sender: FDA-Public Use
  Company Number: IT-TEVA-2023-IT-2867105

PATIENT
  Sex: Male

DRUGS (10)
  1. CARBOPLATIN [Suspect]
     Active Substance: CARBOPLATIN
     Indication: Squamous cell carcinoma of skin
     Dosage: RECEIVED TWO CYCLES
     Route: 065
     Dates: start: 201803
  2. CARBOPLATIN [Suspect]
     Active Substance: CARBOPLATIN
     Dosage: RECEIVED 2 MORE CYCLES
     Route: 065
     Dates: start: 201804
  3. FLUOROURACIL [Suspect]
     Active Substance: FLUOROURACIL
     Indication: Squamous cell carcinoma of skin
     Dosage: RECEIVED TWO CYCLES
     Route: 065
     Dates: start: 201803
  4. FLUOROURACIL [Suspect]
     Active Substance: FLUOROURACIL
     Dosage: RECEIVED 2 MORE CYCLES
     Route: 065
     Dates: start: 201804
  5. NIVOLUMAB [Suspect]
     Active Substance: NIVOLUMAB
     Indication: Squamous cell carcinoma of skin
     Dosage: INFUSION THERAPY 240MG BIWEEKLY
     Route: 065
     Dates: start: 201804
  6. NIVOLUMAB [Suspect]
     Active Substance: NIVOLUMAB
     Indication: Renal cell carcinoma
  7. CABOZANTINIB [Suspect]
     Active Substance: CABOZANTINIB
     Indication: Squamous cell carcinoma of skin
     Dosage: 60 MILLIGRAM DAILY; ONCE DAILY
     Route: 065
     Dates: start: 201912
  8. CABOZANTINIB [Suspect]
     Active Substance: CABOZANTINIB
     Indication: Renal cell carcinoma
  9. CABOZANTINIB [Suspect]
     Active Substance: CABOZANTINIB
     Indication: Metastases to pancreas
  10. CABOZANTINIB [Suspect]
     Active Substance: CABOZANTINIB
     Indication: Metastases to kidney

REACTIONS (3)
  - Drug ineffective [Fatal]
  - Pustular psoriasis [Recovered/Resolved]
  - Psoriasis [Recovered/Resolved]
